FAERS Safety Report 6957678-8 (Version None)
Quarter: 2010Q3

REPORT INFORMATION
  Report Type: 
  Country: None (occurrence: None)
  Receive Date: 20100831
  Receipt Date: 20100818
  Transmission Date: 20110219
  Serious: Yes (Hospitalization)
  Sender: FDA-Public Use
  Company Number: PHHY2010JP54760

PATIENT
  Age: 35 Year
  Sex: Female

DRUGS (1)
  1. SANDIMMUNE [Suspect]
     Indication: COLITIS ULCERATIVE
     Route: 042

REACTIONS (1)
  - CEREBROVASCULAR STENOSIS [None]
